FAERS Safety Report 16154827 (Version 1)
Quarter: 2019Q2

REPORT INFORMATION
  Report Type: Spontaneous
  Country: US (occurrence: US)
  Receive Date: 20190403
  Receipt Date: 20190403
  Transmission Date: 20190711
  Serious: Yes (Hospitalization)
  Sender: FDA-Public Use
  Company Number: US-PURDUE-USA-2019-0146716

PATIENT
  Sex: Male

DRUGS (1)
  1. CODEINE AND ACETAMINOPHEN TABLETS [Suspect]
     Active Substance: ACETAMINOPHEN\CODEINE PHOSPHATE
     Indication: PROCEDURAL PAIN
     Dosage: UNK
     Route: 048

REACTIONS (2)
  - Drug ineffective [Recovered/Resolved]
  - Pain [Recovered/Resolved]
